FAERS Safety Report 8890165 (Version 1)
Quarter: 2012Q4

REPORT INFORMATION
  Report Type: 
  Country: US (occurrence: US)
  Receive Date: 20121107
  Receipt Date: 20121107
  Transmission Date: 20130627
  Serious: Yes (Hospitalization)
  Sender: FDA-Public Use
  Company Number: US-JNJFOC-20121017305

PATIENT
  Age: 19 Year
  Sex: Male
  Weight: 54.43 kg

DRUGS (1)
  1. HALDOL [Suspect]
     Indication: SCHIZOPHRENIA
     Route: 030
     Dates: start: 20121009, end: 20121009

REACTIONS (1)
  - Hypersensitivity [Unknown]
